FAERS Safety Report 5660507-6 (Version None)
Quarter: 2008Q1

REPORT INFORMATION
  Report Type: 
  Country: None (occurrence: None)
  Receive Date: 20080306
  Receipt Date: 20080227
  Transmission Date: 20080703
  Serious: Yes (Hospitalization)
  Sender: FDA-Public Use
  Company Number: 2008-01587

PATIENT
  Age: 17 Year
  Sex: Male

DRUGS (3)
  1. ETOPOSIDE                            (ETOPOSIDE) INJECTION, 20MG/ML [Suspect]
     Indication: TESTICULAR NEOPLASM
     Dosage: 180 MG, DAILY X 4 CYCLES
     Route: 042
     Dates: start: 20080101
  2. CISPLATIN [Suspect]
     Indication: TESTICULAR NEOPLASM
     Dosage: 30 MG, DAILY X 4 CYCLES
     Dates: start: 20080101
  3. BLEOMYCIN SULFATE [Suspect]
     Indication: TESTICULAR NEOPLASM
     Dosage: 30 MG, DAILY X 4 CYCLES
     Dates: start: 20080101

REACTIONS (2)
  - HAEMORRHAGIC CEREBRAL INFARCTION [None]
  - MALIGNANT NEOPLASM PROGRESSION [None]
